FAERS Safety Report 19403956 (Version 2)
Quarter: 2021Q3

REPORT INFORMATION
  Report Type: Report from Study
  Country: None (occurrence: US)
  Receive Date: 20210610
  Receipt Date: 20210719
  Transmission Date: 20211014
  Serious: Yes (Hospitalization, Other)
  Sender: FDA-Public Use
  Company Number: US-ABBVIE-21K-163-3941348-00

PATIENT
  Sex: Female

DRUGS (1)
  1. HUMIRA [Suspect]
     Active Substance: ADALIMUMAB
     Indication: COLITIS ULCERATIVE
     Dosage: CITRATE FREE
     Route: 058
     Dates: end: 202104

REACTIONS (7)
  - Heart rate abnormal [Unknown]
  - Illness [Unknown]
  - Surgery [Recovering/Resolving]
  - Blood pressure decreased [Unknown]
  - Sepsis [Recovering/Resolving]
  - Wound [Unknown]
  - Proctocolectomy [Recovering/Resolving]
